FAERS Safety Report 6647236-7 (Version None)
Quarter: 2010Q1

REPORT INFORMATION
  Report Type: 
  Country: None (occurrence: None)
  Receive Date: 20100323
  Receipt Date: 20100311
  Transmission Date: 20100710
  Serious: Yes (Other)
  Sender: FDA-Public Use
  Company Number: A0847219A

PATIENT
  Sex: Male
  Weight: 86.4 kg

DRUGS (3)
  1. FLOVENT [Suspect]
     Indication: DRUG USE FOR UNKNOWN INDICATION
     Dosage: 2PUFF TWICE PER DAY
     Route: 055
     Dates: start: 20100224, end: 20100224
  2. SALBUTAMOL [Concomitant]
     Route: 065
  3. PROPECIA [Concomitant]
     Route: 065

REACTIONS (12)
  - BRONCHOSPASM [None]
  - DERMATITIS CONTACT [None]
  - DYSPNOEA [None]
  - EYE SWELLING [None]
  - FACE OEDEMA [None]
  - HOT FLUSH [None]
  - LARYNGEAL OEDEMA [None]
  - PRODUCT QUALITY ISSUE [None]
  - PYREXIA [None]
  - RASH [None]
  - SWELLING FACE [None]
  - SWOLLEN TONGUE [None]
